FAERS Safety Report 9062810 (Version 1)
Quarter: 2013Q1

REPORT INFORMATION
  Report Type: Spontaneous
  Country: US (occurrence: US)
  Receive Date: 20130128
  Receipt Date: 20130128
  Transmission Date: 20140127
  Serious: No
  Sender: FDA-Public Use
  Company Number: US-MYLANLABS-2012S1026581

PATIENT
  Age: 55 Year
  Sex: Female

DRUGS (16)
  1. VORICONAZOLE TABLETS [Suspect]
     Indication: ARTHRITIS INFECTIVE
     Route: 048
     Dates: start: 20121211
  2. CLONAZEPAM [Concomitant]
     Route: 048
  3. CYCLOBENZAPRINE [Concomitant]
     Route: 048
  4. DOCUSATE [Concomitant]
     Route: 048
  5. ENOXAPARIN [Concomitant]
     Route: 058
  6. FERROUS SULFATE [Concomitant]
     Dosage: WITH MEALS
     Route: 048
  7. MEROPENEM [Concomitant]
  8. MULTIVITAMIN [Concomitant]
  9. SOLIAN [Concomitant]
     Route: 048
  10. OXYCONTIN [Concomitant]
     Route: 048
  11. POLYCARBOPHIL [Concomitant]
     Route: 048
  12. PRAMIPEXOLE [Concomitant]
     Route: 048
  13. SENNA [Concomitant]
     Route: 048
  14. AMBIEN [Concomitant]
     Route: 048
  15. NORCO [Concomitant]
     Dosage: 5MG/325MG, 1 TO 2 TABLETS EVERY 4 HOURS AS NEEDED
     Route: 048
  16. MAALOX [Concomitant]
     Route: 048

REACTIONS (1)
  - Mucosal inflammation [Not Recovered/Not Resolved]
